FAERS Safety Report 11603545 (Version 1)
Quarter: 2015Q4

REPORT INFORMATION
  Report Type: Spontaneous
  Country: CO (occurrence: CO)
  Receive Date: 20151007
  Receipt Date: 20151007
  Transmission Date: 20160304
  Serious: Yes (Other)
  Sender: FDA-Public Use
  Company Number: CO-HOSPIRA-3033648

PATIENT

DRUGS (1)
  1. DEXDOR [Suspect]
     Active Substance: DEXMEDETOMIDINE HYDROCHLORIDE
     Indication: SEDATIVE THERAPY
     Dosage: 2 MCG/KG/HR
     Route: 042

REACTIONS (4)
  - Oxygen saturation decreased [Unknown]
  - Drug ineffective [Unknown]
  - Restlessness [Unknown]
  - Tachycardia [Unknown]
